FAERS Safety Report 5197405-0 (Version None)
Quarter: 2006Q4

REPORT INFORMATION
  Report Type: 
  Country: None (occurrence: None)
  Receive Date: 20060928
  Receipt Date: 20050913
  Transmission Date: 20070319
  Serious: Yes (Other)
  Sender: FDA-Public Use
  Company Number: HQWYE467714SEP05

PATIENT
  Sex: Female

DRUGS (3)
  1. RAPAMUNE [Suspect]
     Indication: PROPHYLAXIS AGAINST TRANSPLANT REJECTION
     Dates: start: 20050901
  2. PROGRAF [Concomitant]
  3. PREDNISONE TAB [Concomitant]

REACTIONS (2)
  - DYSPNOEA [None]
  - PNEUMONITIS [None]
